FAERS Safety Report 8164079-6 (Version None)
Quarter: 2012Q1

REPORT INFORMATION
  Report Type: 
  Country: None (occurrence: None)
  Receive Date: 20120224
  Receipt Date: 20120214
  Transmission Date: 20120608
  Serious: Yes (Other)
  Sender: FDA-Public Use
  Company Number: PHHY2012JP013083

PATIENT
  Age: 91 Year
  Sex: Male

DRUGS (2)
  1. CARTEOLOL HYDROCHLORIDE [Suspect]
     Dosage: UNK UKN, UNK
     Route: 047
     Dates: end: 20111207
  2. XALATAN [Concomitant]
     Dosage: UNK UKN, UNK
     Route: 047

REACTIONS (3)
  - LOSS OF CONSCIOUSNESS [None]
  - CARDIAC DISORDER [None]
  - FALL [None]
